FAERS Safety Report 14579137 (Version 1)
Quarter: 2018Q1

REPORT INFORMATION
  Report Type: Report from Study
  Country: ES (occurrence: ES)
  Receive Date: 20180227
  Receipt Date: 20180227
  Transmission Date: 20180509
  Serious: Yes (Hospitalization)
  Sender: FDA-Public Use
  Company Number: ES-PFIZER INC-2018069853

PATIENT
  Age: 27 Year
  Sex: Male
  Weight: 59.9 kg

DRUGS (5)
  1. BMS-936558 [Suspect]
     Active Substance: NIVOLUMAB
     Indication: SARCOMA
     Dosage: 177.0 MG, 2 WEEKS
     Dates: start: 20171220, end: 20180131
  2. SUNITINIB MALATE. [Suspect]
     Active Substance: SUNITINIB MALATE
     Dosage: 25.0 MG, DAILY
  3. GABAPENTIN. [Concomitant]
     Active Substance: GABAPENTIN
     Indication: PAIN
     Dosage: UNK
     Dates: start: 20170212
  4. SUNITINIB MALATE. [Suspect]
     Active Substance: SUNITINIB MALATE
     Indication: SARCOMA
     Dosage: 25.0 MG, DAILY
     Dates: start: 20171205
  5. MORPHINE SULFATE. [Concomitant]
     Active Substance: MORPHINE SULFATE
     Indication: PAIN
     Dosage: UNK
     Dates: start: 201702

REACTIONS (1)
  - Pain [Recovering/Resolving]

NARRATIVE: CASE EVENT DATE: 20180212
